FAERS Safety Report 25185791 (Version 1)
Quarter: 2025Q2

REPORT INFORMATION
  Report Type: Spontaneous
  Country: RU (occurrence: RU)
  Receive Date: 20250410
  Receipt Date: 20250410
  Transmission Date: 20250717
  Serious: Yes (Death)
  Sender: ELI LILLY AND CO
  Company Number: RU-ELI_LILLY_AND_COMPANY-RU202504008243

PATIENT
  Age: 57 Year
  Sex: Male
  Weight: 86 kg

DRUGS (1)
  1. RAMUCIRUMAB [Suspect]
     Active Substance: RAMUCIRUMAB
     Indication: Hepatocellular carcinoma
     Route: 065
     Dates: start: 202303

REACTIONS (2)
  - Haemorrhage [Fatal]
  - Varicose vein [Unknown]
